FAERS Safety Report 15379089 (Version 1)
Quarter: 2018Q3

REPORT INFORMATION
  Report Type: Spontaneous
  Country: US (occurrence: US)
  Receive Date: 20180906
  Receipt Date: 20180906
  Transmission Date: 20181010
  Serious: No
  Sender: FDA-Public Use
  Company Number: None

PATIENT
  Age: 75 Year
  Sex: Female
  Weight: 55.79 kg

DRUGS (4)
  1. VALSARTAN 80MG TABLET [Suspect]
     Active Substance: VALSARTAN
     Indication: HYPERTENSION
     Dosage: ?          QUANTITY:1 DF DOSAGE FORM;?
     Route: 048
     Dates: start: 201410, end: 20180719
  2. ASPIRIN. [Concomitant]
     Active Substance: ASPIRIN
  3. ANASTRAZOLE [Concomitant]
     Active Substance: ANASTROZOLE
  4. CALCIUM W D3 [Concomitant]

REACTIONS (1)
  - Breast cancer [None]
